FAERS Safety Report 9113362 (Version 1)
Quarter: 2013Q1

REPORT INFORMATION
  Report Type: Spontaneous
  Country: US (occurrence: US)
  Receive Date: 20130129
  Receipt Date: 20130129
  Transmission Date: 20140127
  Serious: No
  Sender: FDA-Public Use
  Company Number: US-ABBOTT-12P-163-0931821-00

PATIENT
  Sex: Female
  Weight: 131.66 kg

DRUGS (5)
  1. HUMIRA 40 MG/0.8 ML PEN [Suspect]
     Indication: HIDRADENITIS
     Route: 058
     Dates: start: 2011, end: 201112
  2. HUMIRA 40 MG/0.8 ML PEN [Suspect]
     Route: 058
     Dates: start: 201202, end: 20120423
  3. HUMULIN R [Concomitant]
     Indication: TYPE 1 DIABETES MELLITUS
     Route: 058
  4. LEVEMIR [Concomitant]
     Indication: TYPE 1 DIABETES MELLITUS
     Route: 058
  5. LEVOTHYROXINE [Concomitant]
     Indication: HYPOTHYROIDISM
     Route: 050

REACTIONS (8)
  - Heart rate increased [Unknown]
  - Heart rate increased [Unknown]
  - Off label use [Unknown]
  - Dyspnoea [Unknown]
  - Dyspnoea [Unknown]
  - Urinary tract infection [Unknown]
  - Urinary tract infection [Unknown]
  - Pain in extremity [Unknown]
